FAERS Safety Report 19810594 (Version 2)
Quarter: 2021Q3

REPORT INFORMATION
  Report Type: Report from Study
  Country: BR (occurrence: BR)
  Receive Date: 20210909
  Receipt Date: 20210916
  Transmission Date: 20211014
  Serious: Yes (Hospitalization, Disabling, Other)
  Sender: FDA-Public Use
  Company Number: NVSC2020BR043506

PATIENT
  Age: 57 Year
  Sex: Female
  Weight: 73 kg

DRUGS (11)
  1. COSENTYX [Suspect]
     Active Substance: SECUKINUMAB
     Indication: PSORIATIC ARTHROPATHY
     Dosage: UNK UNK, QMO
     Route: 058
     Dates: start: 201901
  2. TANDENE [Suspect]
     Active Substance: ACETAMINOPHEN\CAFFEINE\CARISOPRODOL\DICLOFENAC SODIUM
     Indication: INFLAMMATION
  3. PREDNISOLONE. [Suspect]
     Active Substance: PREDNISOLONE
     Indication: INFLAMMATION
  4. PREDNISONE. [Suspect]
     Active Substance: PREDNISONE
     Indication: PRODUCT USED FOR UNKNOWN INDICATION
     Dosage: UNK
     Route: 065
  5. PREDSIM [Suspect]
     Active Substance: PREDNISOLONE
     Indication: PRODUCT USED FOR UNKNOWN INDICATION
     Dosage: UNK (30 YEARS AGO)
     Route: 065
  6. GLUCOSAMIN + CHONDROITIN+C [ASCORBIC ACID/CHONDROITIN SULFATE/GLUCOSAMINE SULFATE] [Suspect]
     Active Substance: ASCORBIC ACID\CHONDROITIN SULFATE (BOVINE)\GLUCOSAMINE SULFATE
     Indication: ARTHROPATHY
     Dosage: UNK
     Route: 048
  7. METHOTREXATE. [Concomitant]
     Active Substance: METHOTREXATE
     Indication: PRODUCT USED FOR UNKNOWN INDICATION
     Dosage: UNK (BEFORE USING COSENTYX)
     Route: 048
  8. ETANERCEPT [Suspect]
     Active Substance: ETANERCEPT
     Indication: PSORIATIC ARTHROPATHY
     Dosage: UNK UNK, Q2W
     Route: 058
     Dates: end: 201807
  9. TANDENE [Suspect]
     Active Substance: ACETAMINOPHEN\CAFFEINE\CARISOPRODOL\DICLOFENAC SODIUM
     Indication: PAIN
     Dosage: 1 DF, QD ((BEFORE USING COSENTYX))
     Route: 048
  10. BUSCOPAN [Concomitant]
     Active Substance: BUTYLSCOPOLAMINE BROMIDE
     Indication: PRODUCT USED FOR UNKNOWN INDICATION
     Dosage: UNK
     Route: 065
  11. PREDNISOLONE. [Suspect]
     Active Substance: PREDNISOLONE
     Indication: PAIN
     Dosage: UNK
     Route: 048

REACTIONS (40)
  - Mean cell volume decreased [Unknown]
  - Gait disturbance [Unknown]
  - Hand deformity [Unknown]
  - Psoriasis [Recovering/Resolving]
  - Gastritis [Unknown]
  - Gastrooesophageal reflux disease [Unknown]
  - Humerus fracture [Unknown]
  - Resorption bone increased [Unknown]
  - Oropharyngeal pain [Recovered/Resolved]
  - Blood urea increased [Recovering/Resolving]
  - Decreased immune responsiveness [Unknown]
  - Fatigue [Recovered/Resolved]
  - Fall [Unknown]
  - Nasal congestion [Recovered/Resolved]
  - Eosinophil count decreased [Unknown]
  - Pyrexia [Recovered/Resolved]
  - Ligament sprain [Recovering/Resolving]
  - Bone loss [Unknown]
  - Osteonecrosis [Unknown]
  - Nasopharyngitis [Recovered/Resolved]
  - Mean cell haemoglobin decreased [Unknown]
  - Red cell distribution width increased [Unknown]
  - Influenza [Recovered/Resolved]
  - Ligament rupture [Recovering/Resolving]
  - Inflammation [Unknown]
  - Finger deformity [Unknown]
  - Fatigue [Recovering/Resolving]
  - White blood cell count increased [Unknown]
  - Neutrophil count increased [Unknown]
  - Monocyte count increased [Unknown]
  - Dehydration [Unknown]
  - Foot deformity [Unknown]
  - Abdominal pain upper [Unknown]
  - Polyarthritis [Unknown]
  - Bone deformity [Unknown]
  - Skin exfoliation [Unknown]
  - Nail disorder [Unknown]
  - Pain [Unknown]
  - Oesophagitis [Unknown]
  - Illness [Unknown]

NARRATIVE: CASE EVENT DATE: 2010
